FAERS Safety Report 5174400-9 (Version None)
Quarter: 2006Q4

REPORT INFORMATION
  Report Type: 
  Country: None (occurrence: None)
  Receive Date: 20061214
  Receipt Date: 20061205
  Transmission Date: 20070319
  Serious: Yes (Hospitalization)
  Sender: FDA-Public Use
  Company Number: JP-ELI_LILLY_AND_COMPANY-JP200612000970

PATIENT
  Sex: Male

DRUGS (2)
  1. GEMZAR [Suspect]
     Indication: TRANSITIONAL CELL CANCER OF THE RENAL PELVIS AND URETER
     Dosage: 1000 MG/M2, OTHER
     Route: 042
  2. PACLITAXEL [Concomitant]
     Indication: TRANSITIONAL CELL CANCER OF THE RENAL PELVIS AND URETER
     Dosage: 180 MG/M2, OTHER
     Route: 042

REACTIONS (2)
  - HYPOAESTHESIA [None]
  - URTICARIA [None]
